FAERS Safety Report 9516751 (Version 1)
Quarter: 2013Q1

REPORT INFORMATION
  Report Type: Spontaneous
  Country: US (occurrence: None)
  Receive Date: 20130305
  Receipt Date: 20130305
  Transmission Date: 20140127
  Serious: Yes (Other)
  Sender: FDA-Public Use
  Company Number: 163-21880-12081367

PATIENT
  Age: 64 Year
  Sex: Male
  Weight: 68.95 kg

DRUGS (9)
  1. REVLIMID(LENALIDOMIDE)(5 MILLIGRAM, CAPSULES) [Suspect]
     Indication: LYMPHOMA
     Dosage: 20 MG, 4 IN 1 D, PO
     Dates: start: 20120701
  2. ALLOPURINOL(ALLOPURINOL)(UNKNOWN) [Concomitant]
  3. DEXAMETHASONE(DEXAMETHASONE)(UNKNOWN) [Concomitant]
  4. FLUCONAZOLE(FLUCONAZOLE) [Concomitant]
  5. LORAZEPAM(LORAZEPAM) [Concomitant]
  6. OXYCODONE(OXYCODONE) [Concomitant]
  7. OXYCONTIN(OXYCODONE HYDROCHLORIDE) [Concomitant]
  8. VALACYCLOVIR(VALACICLOVIR HYDROCHLORIDE)(UNKNOWN) [Concomitant]
  9. ZOFRAN(ONDANSETRON HYDROCHLORIDE)(UNKNOWN) [Concomitant]

REACTIONS (3)
  - Fatigue [None]
  - Asthenia [None]
  - Red blood cell count decreased [None]
